FAERS Safety Report 10676942 (Version 2)
Quarter: 2015Q1

REPORT INFORMATION
  Report Type: Spontaneous
  Country: JP (occurrence: JP)
  Receive Date: 20141226
  Receipt Date: 20150112
  Transmission Date: 20150720
  Serious: Yes (Hospitalization)
  Sender: FDA-Public Use
  Company Number: JP-SA-2014SA176407

PATIENT
  Age: 38 Year
  Sex: Male

DRUGS (2)
  1. DELLEGRA [Suspect]
     Active Substance: FEXOFENADINE HYDROCHLORIDE\PSEUDOEPHEDRINE HYDROCHLORIDE
     Indication: RHINITIS ALLERGIC
     Dosage: DOSE: 120+240 MG
     Route: 048
     Dates: start: 20141212, end: 20141213
  2. MUCOBULIN [Suspect]
     Active Substance: AMBROXOL HYDROCHLORIDE
     Indication: UPPER RESPIRATORY TRACT INFLAMMATION
     Route: 065
     Dates: start: 20141212, end: 20141213

REACTIONS (1)
  - Viral rash [Unknown]

NARRATIVE: CASE EVENT DATE: 20141212
